FAERS Safety Report 22660783 (Version 1)
Quarter: 2023Q2

REPORT INFORMATION
  Report Type: Spontaneous
  Country: FR (occurrence: FR)
  Receive Date: 20230630
  Receipt Date: 20230630
  Transmission Date: 20230722
  Serious: No
  Sender: FDA-Public Use
  Company Number: FR-JAZZ PHARMACEUTICALS-2023-FR-005528

PATIENT

DRUGS (15)
  1. CANNABIDIOL [Interacting]
     Active Substance: CANNABIDIOL
     Indication: Epileptic encephalopathy
     Dosage: 50 MILLIGRAM, QD
     Route: 048
     Dates: start: 20230216, end: 20230222
  2. CANNABIDIOL [Interacting]
     Active Substance: CANNABIDIOL
     Dosage: 50 MILLIGRAM, BID
     Route: 048
     Dates: start: 20230223, end: 20230301
  3. CANNABIDIOL [Interacting]
     Active Substance: CANNABIDIOL
     Dosage: 100 MILLIGRAM, BID
     Route: 048
     Dates: start: 20230302
  4. MIDAZOLAM HYDROCHLORIDE [Interacting]
     Active Substance: MIDAZOLAM HYDROCHLORIDE
     Indication: Epileptic encephalopathy
     Dosage: 7 MILLIGRAM
     Route: 042
     Dates: start: 202106, end: 202207
  5. MIDAZOLAM HYDROCHLORIDE [Interacting]
     Active Substance: MIDAZOLAM HYDROCHLORIDE
     Dosage: 8 MILLIGRAM
     Route: 042
     Dates: start: 202207, end: 202208
  6. MIDAZOLAM HYDROCHLORIDE [Interacting]
     Active Substance: MIDAZOLAM HYDROCHLORIDE
     Dosage: 7 MILLIGRAM
     Route: 042
     Dates: start: 202208, end: 202210
  7. MIDAZOLAM HYDROCHLORIDE [Interacting]
     Active Substance: MIDAZOLAM HYDROCHLORIDE
     Dosage: 10 MILLIGRAM
     Route: 042
     Dates: start: 202210, end: 202211
  8. MIDAZOLAM HYDROCHLORIDE [Interacting]
     Active Substance: MIDAZOLAM HYDROCHLORIDE
     Dosage: 11 MILLIGRAM
     Route: 042
     Dates: start: 202211
  9. RIVOTRIL [Concomitant]
     Active Substance: CLONAZEPAM
     Indication: Epileptic encephalopathy
     Dosage: 22 (DRP), 6 HOURS
     Route: 048
  10. VALPROATE SODIUM [Concomitant]
     Active Substance: VALPROATE SODIUM
     Indication: Epileptic encephalopathy
     Dosage: 1800 MILLIGRAM, QD
     Route: 048
  11. DIPHANTE [Concomitant]
     Indication: Epileptic encephalopathy
     Dosage: 350 MILLIGRAM, QD
     Route: 048
  12. LEVOFLOXACIN [Concomitant]
     Active Substance: LEVOFLOXACIN
     Indication: Thrombosis prophylaxis
     Dosage: 4000 IU, 1 DAY
     Route: 048
  13. CLOBAZAM [Concomitant]
     Active Substance: CLOBAZAM
     Indication: Epileptic encephalopathy
     Dosage: 10 MILLIGRAM, 8 HOURS
     Route: 048
  14. MELATONIN [Concomitant]
     Active Substance: MELATONIN
     Indication: Insomnia
     Dosage: 12 MILLIGRAM, QD
     Route: 048
  15. MAGNESIUM CARBONATE [Concomitant]
     Active Substance: MAGNESIUM CARBONATE
     Indication: Magnesium deficiency
     Dosage: 2 DOSAGE FORM, 1 AS NECESARY
     Route: 048

REACTIONS (2)
  - Drug level increased [Not Recovered/Not Resolved]
  - Off label use [Unknown]

NARRATIVE: CASE EVENT DATE: 20230224
